FAERS Safety Report 8785385 (Version 3)
Quarter: 2012Q4

REPORT INFORMATION
  Report Type: 
  Country: US (occurrence: US)
  Receive Date: 20120914
  Receipt Date: 20120928
  Transmission Date: 20130627
  Serious: No
  Sender: FDA-Public Use
  Company Number: US-PFIZER INC-2012222757

PATIENT
  Age: 65 Year
  Sex: Female
  Weight: 97.51 kg

DRUGS (13)
  1. LYRICA [Suspect]
     Indication: HEADACHE
     Dosage: 100 mg, 2x/day
     Route: 048
     Dates: start: 20100901, end: 201209
  2. LYRICA [Suspect]
     Dosage: 100 mg, 1x/day
     Dates: start: 201209
  3. METFORMIN [Concomitant]
     Indication: DIABETES MELLITUS
     Dosage: 100 mg, 2x/day
     Route: 048
  4. ONGLYZA [Concomitant]
     Indication: DIABETES MELLITUS
     Dosage: 5 mg, 1x/day
     Route: 048
  5. ESTRADIOL [Concomitant]
     Dosage: 1 mg, 1x/day
     Route: 048
  6. LEXAPRO [Concomitant]
     Dosage: 10 mg, 1x/day
     Route: 048
  7. ACETYLSALICYLIC ACID [Concomitant]
     Dosage: 81 mg, 1x/day
     Route: 048
  8. LASIX [Concomitant]
     Dosage: 40 mg, 1x/day
     Route: 048
  9. POTASSIUM CHLORIDE [Concomitant]
     Dosage: 10 mEq, 1x/day
     Route: 048
  10. OMEPRAZOLE [Concomitant]
     Dosage: 20 mg, 1x/day
     Route: 048
  11. GLUCOSAMINE [Concomitant]
     Dosage: 1000 mg, 1x/day
     Route: 048
  12. CRESTOR [Concomitant]
     Dosage: 20 mg, 1x/day
     Route: 048
  13. CO-Q-10 [Concomitant]
     Dosage: 100 mg, 1x/day
     Route: 048

REACTIONS (4)
  - Off label use [Unknown]
  - Dysphonia [Unknown]
  - Wrong technique in drug usage process [Unknown]
  - Headache [Not Recovered/Not Resolved]
